FAERS Safety Report 10269574 (Version 1)
Quarter: 2014Q2

REPORT INFORMATION
  Report Type: Spontaneous
  Country: AT (occurrence: None)
  Receive Date: 20140620
  Receipt Date: 20140620
  Transmission Date: 20141212
  Serious: Yes (Life-Threatening)
  Sender: FDA-Public Use
  Company Number: GAM-198-14-AU

PATIENT
  Age: 90 Year
  Sex: Male

DRUGS (14)
  1. OCTAGAM 5 (HUMAN NORMAL IMMUNOGLOBULIN (IV)) [Suspect]
     Indication: GUILLAIN-BARRE SYNDROME
     Route: 042
     Dates: start: 20140603, end: 20140607
  2. ENOXAPARIN [Concomitant]
  3. THIAMINE [Concomitant]
  4. ALLOPURINOL [Concomitant]
  5. AMIODARONE [Concomitant]
  6. ACETYLSALICYLIC ACID [Concomitant]
  7. PERINDOPRIL [Concomitant]
  8. ISOSORBIDE MONONITRATE [Concomitant]
  9. TIOTROPIUM BROMIDE [Concomitant]
  10. FUROSEMIDE [Concomitant]
  11. BUDESONIDE AND EFORMOTEROL FUMERATE [Concomitant]
  12. BENSERAZIDE AND PHENYLALANINE [Concomitant]
  13. BUDESONIDE [Concomitant]
  14. INDACATEROL [Concomitant]

REACTIONS (4)
  - Dyspnoea [None]
  - Hypertension [None]
  - Tachycardia [None]
  - Wheezing [None]
